FAERS Safety Report 14599185 (Version 1)
Quarter: 2018Q1

REPORT INFORMATION
  Report Type: Spontaneous
  Country: US (occurrence: US)
  Receive Date: 20180305
  Receipt Date: 20180305
  Transmission Date: 20180509
  Serious: Yes (Hospitalization, Other)
  Sender: FDA-Public Use
  Company Number: US-JUBILANT CADISTA PHARMACEUTICALS-2018JUB00052

PATIENT
  Age: 52 Year
  Sex: Female

DRUGS (2)
  1. QUETIAPINE. [Suspect]
     Active Substance: QUETIAPINE
     Dosage: 1150 MG, UNK
     Route: 048
  2. UNSPECIFIED BENZODIAZPINES [Concomitant]
     Route: 065

REACTIONS (3)
  - Pericarditis [Recovered/Resolved]
  - Eosinophilia [Unknown]
  - Overdose [Recovered/Resolved]
